FAERS Safety Report 8564846-0 (Version None)
Quarter: 2012Q3

REPORT INFORMATION
  Report Type: 
  Country: None (occurrence: None)
  Receive Date: 20120803
  Receipt Date: 20120726
  Transmission Date: 20120928
  Serious: Yes (Other)
  Sender: FDA-Public Use
  Company Number: US-ELI_LILLY_AND_COMPANY-US201102001867

PATIENT
  Sex: Female

DRUGS (12)
  1. ANALGESICS [Concomitant]
     Indication: PAIN
  2. FORTEO [Suspect]
     Dosage: 20 UG, QD
     Dates: start: 20120716
  3. FORTEO [Suspect]
     Dosage: 20 UG, QD
  4. FORTEO [Suspect]
     Dosage: 20 UG, QD
  5. AZOR [Concomitant]
     Indication: BLOOD PRESSURE
     Dosage: UNK
  6. FORTEO [Suspect]
     Dosage: 20 UG, DAILY (1/D)
  7. FORTEO [Suspect]
     Dosage: 20 UG, QD
  8. FORTEO [Suspect]
     Dosage: 20 UG, QD
  9. PRILOSEC [Concomitant]
     Indication: GASTROINTESTINAL TRACT IRRITATION
     Dates: start: 20101101
  10. VITAMIN TAB [Concomitant]
  11. FUROSEMIDE [Concomitant]
     Indication: DIURETIC THERAPY
     Dosage: UNK
  12. FORTEO [Suspect]
     Indication: OSTEOPOROSIS
     Dosage: 20 UG, DAILY (1/D)
     Dates: start: 20101101

REACTIONS (28)
  - BACK PAIN [None]
  - MOBILITY DECREASED [None]
  - STRESS [None]
  - MUSCLE DISORDER [None]
  - ASTHENIA [None]
  - PHOTOPSIA [None]
  - FEAR OF FALLING [None]
  - BONE PAIN [None]
  - TREMOR [None]
  - ARTHRALGIA [None]
  - PULMONARY MASS [None]
  - ABDOMINAL DISCOMFORT [None]
  - ARTHROPATHY [None]
  - MYALGIA [None]
  - GROIN PAIN [None]
  - BLADDER DISORDER [None]
  - PAIN IN EXTREMITY [None]
  - SLEEP DISORDER DUE TO A GENERAL MEDICAL CONDITION [None]
  - MASS [None]
  - MUSCULAR WEAKNESS [None]
  - GAIT DISTURBANCE [None]
  - INJECTION SITE PAIN [None]
  - NEOPLASM MALIGNANT [None]
  - MUSCULOSKELETAL DISCOMFORT [None]
  - MIDDLE INSOMNIA [None]
  - PAIN [None]
  - DIPLOPIA [None]
  - EXPIRED DRUG ADMINISTERED [None]
